FAERS Safety Report 17945175 (Version 1)
Quarter: 2020Q2

REPORT INFORMATION
  Report Type: Report from Study
  Country: KR (occurrence: KR)
  Receive Date: 20200625
  Receipt Date: 20200625
  Transmission Date: 20200714
  Serious: Yes (Hospitalization, Disabling)
  Sender: FDA-Public Use
  Company Number: KR-EISAI MEDICAL RESEARCH-EC-2020-076423

PATIENT
  Age: 78 Year
  Sex: Male
  Weight: 70 kg

DRUGS (14)
  1. LOPMIN [Concomitant]
  2. POLYBUTINE SR [Concomitant]
  3. SYNERJET [Concomitant]
  4. LENVIMA [Suspect]
     Active Substance: LENVATINIB
     Indication: HEPATOCELLULAR CARCINOMA
     Route: 048
     Dates: start: 20200122, end: 20200319
  5. LIVACT GRAN [Concomitant]
  6. DAEWON MEGESTROL ES [Concomitant]
  7. ALDACTONE [Concomitant]
     Active Substance: SPIRONOLACTONE
  8. LASIX [Concomitant]
     Active Substance: FUROSEMIDE
  9. DUPHALAC-EASY SYR [Concomitant]
     Active Substance: LACTULOSE
  10. ACTIQ [Concomitant]
     Active Substance: FENTANYL CITRATE
  11. CENTRUM ADVANCE [Concomitant]
     Active Substance: VITAMINS
  12. LANSTON LFDT [Concomitant]
     Active Substance: LANSOPRAZOLE
  13. LIPITOR [Concomitant]
     Active Substance: ATORVASTATIN CALCIUM
  14. DUROGESIC D-TRANS [Concomitant]
     Active Substance: FENTANYL

REACTIONS (6)
  - Abdominal pain [Recovered/Resolved]
  - Abdominal pain upper [Recovered/Resolved]
  - Hyperkalaemia [Recovered/Resolved]
  - Oedema [Not Recovered/Not Resolved]
  - Acidosis [Recovered/Resolved]
  - Decreased appetite [Recovered/Resolved]

NARRATIVE: CASE EVENT DATE: 202001
